FAERS Safety Report 9287081 (Version 1)
Quarter: 2013Q2

REPORT INFORMATION
  Report Type: Spontaneous
  Country: US (occurrence: None)
  Receive Date: 20130508
  Receipt Date: 20130508
  Transmission Date: 20140414
  Serious: Yes (Other)
  Sender: FDA-Public Use
  Company Number: AUR-APL-2013-03714

PATIENT
  Sex: Female

DRUGS (1)
  1. VENLAFAXINE (VENLAFAXINE) [Suspect]
     Indication: MAJOR DEPRESSION
     Route: 048
     Dates: end: 20130420

REACTIONS (1)
  - Hearing impaired [None]
